FAERS Safety Report 21830789 (Version 4)
Quarter: 2023Q1

REPORT INFORMATION
  Report Type: Spontaneous
  Country: BR (occurrence: BR)
  Receive Date: 20230106
  Receipt Date: 20230314
  Transmission Date: 20230418
  Serious: Yes (Other)
  Sender: FDA-Public Use
  Company Number: BR-PFIZER INC-202300002142

PATIENT
  Age: 13 Year
  Sex: Male

DRUGS (2)
  1. GENOTROPIN [Suspect]
     Active Substance: SOMATROPIN
     Indication: Growth disorder
     Dosage: 1.8 MG, CYCLIC (ONCE DAILY FOR 6 DAYS A WEEK, 1 DAY OFF)
     Route: 058
     Dates: start: 20221208
  2. MELATONIN [Concomitant]
     Active Substance: MELATONIN
     Indication: Insomnia
     Dosage: UNK
     Route: 048
     Dates: start: 2022

REACTIONS (4)
  - Syncope [Recovered/Resolved]
  - Device occlusion [Unknown]
  - Inappropriate schedule of product administration [Unknown]
  - Fear of injection [Unknown]

NARRATIVE: CASE EVENT DATE: 20221201
